FAERS Safety Report 21822968 (Version 1)
Quarter: 2023Q1

REPORT INFORMATION
  Report Type: Spontaneous
  Country: US (occurrence: US)
  Receive Date: 20230105
  Receipt Date: 20230105
  Transmission Date: 20230418
  Serious: No
  Sender: FDA-Public Use
  Company Number: US-AMNEAL PHARMACEUTICALS-2022-AMRX-03153

PATIENT
  Age: 44 Year
  Sex: Female

DRUGS (5)
  1. ACTIVELLA [Suspect]
     Active Substance: ESTRADIOL\NORETHINDRONE ACETATE
     Indication: Uterine leiomyoma
     Dosage: 1 TABLETS, QD
     Route: 048
     Dates: start: 20190509, end: 20220420
  2. ELAGOLIX [Suspect]
     Active Substance: ELAGOLIX
     Indication: Uterine leiomyoma
     Dosage: 300 MILLIGRAM, QD
     Route: 048
     Dates: start: 20200416, end: 20220420
  3. VITAMIN D NOS [Concomitant]
     Active Substance: VITAMIN D NOS
     Indication: Supplementation therapy
     Dosage: 500 UI, 1 /DAY
     Route: 048
     Dates: start: 20200602
  4. VITAMIN C [Concomitant]
     Active Substance: ASCORBIC ACID
     Indication: Supplementation therapy
     Dosage: 1000 UI, 1 /DAY
     Route: 048
     Dates: start: 20200602
  5. VITAMIN B12 [Concomitant]
     Active Substance: CYANOCOBALAMIN
     Indication: Supplementation therapy
     Dosage: 1 TABLETS, 1 /DAY
     Route: 048
     Dates: start: 20200602

REACTIONS (1)
  - Bone density decreased [Not Recovered/Not Resolved]

NARRATIVE: CASE EVENT DATE: 20220125
